FAERS Safety Report 13891784 (Version 1)
Quarter: 2017Q3

REPORT INFORMATION
  Report Type: Spontaneous
  Country: US (occurrence: US)
  Receive Date: 20170822
  Receipt Date: 20170822
  Transmission Date: 20171127
  Serious: No
  Sender: FDA-Public Use
  Company Number: US-LANNETT COMPANY, INC.-US-2017LAN000649

PATIENT

DRUGS (2)
  1. GLYCOLAX [Suspect]
     Active Substance: POLYETHYLENE GLYCOL 3350
     Indication: PELVIC FLOOR DYSSYNERGIA
     Dosage: 1 CAP, 2-3 TIMES PER DAY
     Route: 048
     Dates: start: 201607
  2. GLYCOLAX [Suspect]
     Active Substance: POLYETHYLENE GLYCOL 3350
     Dosage: 1 CAP, 2-3 TIMES PER DAY
     Route: 048
     Dates: start: 20170305

REACTIONS (2)
  - Throat irritation [Unknown]
  - Product odour abnormal [Unknown]

NARRATIVE: CASE EVENT DATE: 201703
